FAERS Safety Report 6758411-5 (Version None)
Quarter: 2010Q2

REPORT INFORMATION
  Report Type: 
  Country: None (occurrence: None)
  Receive Date: 20100607
  Receipt Date: 20100525
  Transmission Date: 20101027
  Serious: Yes (Hospitalization, Other)
  Sender: FDA-Public Use
  Company Number: US-ROCHE-701946

PATIENT
  Sex: Female
  Weight: 50.8 kg

DRUGS (7)
  1. RIBAVIRIN [Suspect]
     Dosage: LAST DOSE PRIOR TO SAE: 15 APR 10
     Route: 048
     Dates: start: 20091113, end: 20100420
  2. PEGINTERFERON ALFA-2A [Suspect]
     Dosage: LAST DOSE PRIOR TO SAE: 12 APR 10. FORM: SUSP.ROUTE: INJ.
     Route: 050
     Dates: start: 20091113, end: 20100420
  3. AMOXICILLIN [Concomitant]
     Indication: GASTRITIS
     Dates: start: 20100211
  4. NEXIUM [Concomitant]
     Indication: GASTRITIS
     Route: 048
     Dates: start: 20100211
  5. CLARITHROMYCIN [Concomitant]
     Indication: GASTRITIS
     Dates: start: 20100211
  6. TAMOXIFEN CITRATE [Concomitant]
     Indication: BREAST CANCER
     Route: 048
     Dates: start: 20050101
  7. FEROSUL [Concomitant]
     Route: 048
     Dates: start: 20100211

REACTIONS (4)
  - ANAEMIA [None]
  - CHEST PAIN [None]
  - COUGH [None]
  - DYSPNOEA [None]
